FAERS Safety Report 7606987-8 (Version None)
Quarter: 2011Q3

REPORT INFORMATION
  Report Type: 
  Country: None (occurrence: None)
  Receive Date: 20110713
  Receipt Date: 20110711
  Transmission Date: 20111222
  Serious: Yes (Disabling, Other)
  Sender: FDA-Public Use
  Company Number: JP-PFIZER INC-2011135884

PATIENT
  Age: 68 Year
  Sex: Female
  Weight: 59 kg

DRUGS (5)
  1. MUCOSOLVAN [Concomitant]
     Indication: BRONCHITIS
     Dosage: 45MG PER DAY
     Route: 048
     Dates: start: 20110606, end: 20110627
  2. VARENICLINE TARTRATE [Suspect]
     Indication: NICOTINE DEPENDENCE
     Dosage: 0.5 MG, 2X/DAY
     Route: 048
     Dates: start: 20110603, end: 20110604
  3. VARENICLINE TARTRATE [Suspect]
     Indication: SMOKING CESSATION THERAPY
     Dosage: 0.5 MG, 1X/DAY
     Route: 048
     Dates: start: 20110531, end: 20110602
  4. VARENICLINE TARTRATE [Suspect]
     Dosage: 1.0 MG, 2X/DAY
     Route: 048
     Dates: start: 20110607, end: 20110612
  5. SEKINARIN [Concomitant]
     Indication: BRONCHITIS
     Dosage: 2MG, UNK
     Route: 062
     Dates: start: 20110606, end: 20110627

REACTIONS (3)
  - APATHY [None]
  - DISTURBANCE IN ATTENTION [None]
  - DEPRESSION [None]
